FAERS Safety Report 7020747-0 (Version None)
Quarter: 2010Q3

REPORT INFORMATION
  Report Type: 
  Country: None (occurrence: None)
  Receive Date: 20100927
  Receipt Date: 20100914
  Transmission Date: 20110219
  Serious: Yes (Other)
  Sender: FDA-Public Use
  Company Number: 2010SP049715

PATIENT
  Sex: Female

DRUGS (1)
  1. IMPLANON [Suspect]
     Indication: CONTRACEPTION
     Dosage: SBDE
     Route: 059

REACTIONS (4)
  - DEVICE EXPULSION [None]
  - IMPLANT SITE ERYTHEMA [None]
  - IMPLANT SITE NECROSIS [None]
  - IMPLANT SITE PRURITUS [None]
